FAERS Safety Report 19001716 (Version 1)
Quarter: 2021Q1

REPORT INFORMATION
  Report Type: Spontaneous
  Country: US (occurrence: US)
  Receive Date: 20210312
  Receipt Date: 20210312
  Transmission Date: 20210420
  Serious: No
  Sender: FDA-Public Use
  Company Number: US-FARMAPROD-202012-1765

PATIENT
  Sex: Female

DRUGS (10)
  1. CALCIUM CARBONATE. [Concomitant]
     Active Substance: CALCIUM CARBONATE
     Dosage: 500 (1250) MG
  2. VITAMIN D3 [Concomitant]
     Active Substance: CHOLECALCIFEROL
  3. HUMULIN N [Concomitant]
     Active Substance: INSULIN HUMAN
  4. ALENDRONATE SODIUM. [Concomitant]
     Active Substance: ALENDRONATE SODIUM
  5. LISINOPRIL. [Concomitant]
     Active Substance: LISINOPRIL
  6. OXERVATE [Suspect]
     Active Substance: CENEGERMIN-BKBJ
     Indication: NEUROTROPHIC KERATOPATHY
     Route: 047
     Dates: start: 202012
  7. ATORVASTATIN CALCIUM. [Concomitant]
     Active Substance: ATORVASTATIN CALCIUM
  8. REFRESH [Concomitant]
     Active Substance: UNSPECIFIED INGREDIENT
  9. ASPIRINE [Concomitant]
     Active Substance: ASPIRIN
  10. AMLODIPINE BESYLATE. [Concomitant]
     Active Substance: AMLODIPINE BESYLATE

REACTIONS (1)
  - Eye pain [Unknown]
